FAERS Safety Report 6914635-5 (Version None)
Quarter: 2010Q3

REPORT INFORMATION
  Report Type: 
  Country: None (occurrence: None)
  Receive Date: 20100809
  Receipt Date: 20100803
  Transmission Date: 20110219
  Serious: Yes (Death, Disabling)
  Sender: FDA-Public Use
  Company Number: JP-MERCK-1007USA00242

PATIENT
  Age: 86 Year
  Sex: Male
  Weight: 39 kg

DRUGS (9)
  1. SINEMET [Suspect]
     Route: 048
     Dates: end: 20100617
  2. SINEMET [Suspect]
     Route: 048
     Dates: start: 20100621
  3. PRAMIPEXOLE DIHYDROCHLORIDE [Concomitant]
     Route: 048
  4. NILDILART [Concomitant]
     Route: 048
  5. URSO 250 [Concomitant]
     Route: 048
  6. VASOTEC [Concomitant]
     Route: 048
  7. CRAVIT [Concomitant]
     Route: 048
  8. STANZOME [Concomitant]
     Route: 048
  9. MAGMITT [Concomitant]
     Route: 048

REACTIONS (3)
  - CENTRAL NERVOUS SYSTEM NECROSIS [None]
  - DEATH [None]
  - DEPRESSED LEVEL OF CONSCIOUSNESS [None]
